FAERS Safety Report 15198229 (Version 3)
Quarter: 2019Q1

REPORT INFORMATION
  Report Type: Spontaneous
  Country: GR (occurrence: GR)
  Receive Date: 20180725
  Receipt Date: 20190326
  Transmission Date: 20190417
  Serious: Yes (Hospitalization, Other)
  Sender: FDA-Public Use
  Company Number: GR-MYLANLABS-2018M1054037

PATIENT
  Age: 61 Year
  Sex: Female

DRUGS (1)
  1. ATORVASTATIN [Suspect]
     Active Substance: ATORVASTATIN
     Indication: DYSLIPIDAEMIA
     Dosage: 20 MILLIGRAM, QD

REACTIONS (6)
  - Necrotising myositis [Unknown]
  - Dysphonia [Recovering/Resolving]
  - Dysphagia [Recovering/Resolving]
  - Pain in extremity [Recovering/Resolving]
  - Gait inability [Unknown]
  - Muscular weakness [Recovering/Resolving]
